FAERS Safety Report 15263274 (Version 3)
Quarter: 2018Q3

REPORT INFORMATION
  Report Type: Spontaneous
  Country: US (occurrence: US)
  Receive Date: 20180810
  Receipt Date: 20180823
  Transmission Date: 20181010
  Serious: Yes (Hospitalization)
  Sender: FDA-Public Use
  Company Number: US-HORIZON-RAV-0121-2018

PATIENT
  Age: 7 Year
  Sex: Male

DRUGS (3)
  1. LEVOCARNITINE. [Concomitant]
     Active Substance: LEVOCARNITINE
  2. CITRULLINE [Concomitant]
     Active Substance: CITRULLINE
  3. RAVICTI [Suspect]
     Active Substance: GLYCEROL PHENYLBUTYRATE
     Indication: LYSINURIC PROTEIN INTOLERANCE
     Dosage: 1 ML TID
     Route: 048

REACTIONS (5)
  - Ammonia increased [Unknown]
  - Histiocytosis haematophagic [Not Recovered/Not Resolved]
  - Off label use [Unknown]
  - Respiratory failure [Recovering/Resolving]
  - Hypoxia [Recovering/Resolving]

NARRATIVE: CASE EVENT DATE: 20180816
